FAERS Safety Report 13712971 (Version 1)
Quarter: 2017Q3

REPORT INFORMATION
  Report Type: Spontaneous
  Country: IT (occurrence: IT)
  Receive Date: 20170704
  Receipt Date: 20170704
  Transmission Date: 20171127
  Serious: Yes (Other)
  Sender: FDA-Public Use
  Company Number: PHHY2017IT093698

PATIENT

DRUGS (1)
  1. ACZ885 [Suspect]
     Active Substance: CANAKINUMAB
     Indication: STILL^S DISEASE
     Dosage: 150 MG, EVERY 8 WEEKS
     Route: 065

REACTIONS (3)
  - Still^s disease [Unknown]
  - Condition aggravated [Unknown]
  - Histiocytosis haematophagic [Recovered/Resolved]
